FAERS Safety Report 8057947-7 (Version None)
Quarter: 2012Q1

REPORT INFORMATION
  Report Type: 
  Country: None (occurrence: None)
  Receive Date: 20120120
  Receipt Date: 20120113
  Transmission Date: 20120608
  Serious: Yes (Other)
  Sender: FDA-Public Use
  Company Number: US-PFIZER INC-2012010967

PATIENT
  Sex: Female
  Weight: 64.399 kg

DRUGS (9)
  1. SYNTHROID [Concomitant]
     Dosage: 0.25 UG, UNK
  2. NEURONTIN [Suspect]
     Indication: HEADACHE
  3. HYDROCHLOROTHIAZIDE [Concomitant]
     Dosage: 25 MG, UNK
  4. ACETYLSALICYLIC ACID [Concomitant]
     Dosage: 81 MG, UNK
  5. NEURONTIN [Suspect]
     Indication: MUSCLE SPASMS
     Dosage: 300 MG, 3X/DAY
     Route: 048
     Dates: start: 20110401
  6. NEURONTIN [Suspect]
     Indication: FIBROMYALGIA
  7. PRAVACHOL [Concomitant]
     Dosage: 40 MG, UNK
  8. LOPRESSOR [Concomitant]
     Dosage: 100 MG, UNK
  9. LORTAB [Concomitant]
     Indication: HEADACHE
     Dosage: 7.5/500 MG, UNK

REACTIONS (4)
  - MEMORY IMPAIRMENT [None]
  - PAIN IN EXTREMITY [None]
  - BREAST CANCER [None]
  - ALOPECIA [None]
